FAERS Safety Report 23705223 (Version 1)
Quarter: 2024Q2

REPORT INFORMATION
  Report Type: Spontaneous
  Country: CA (occurrence: CA)
  Receive Date: 20240404
  Receipt Date: 20240404
  Transmission Date: 20240715
  Serious: Yes (Other)
  Sender: FDA-Public Use
  Company Number: CA-JNJFOC-20240402503

PATIENT
  Sex: Female

DRUGS (1)
  1. ELMIRON [Suspect]
     Active Substance: PENTOSAN POLYSULFATE SODIUM
     Indication: Cystitis interstitial
     Dosage: PPS FOR APPROXIMATELY 20 YEARS WITH A DOSE OF 300 MG DAILY
     Route: 048
     Dates: end: 2023

REACTIONS (2)
  - Retinal dystrophy [Not Recovered/Not Resolved]
  - Pigmentary maculopathy [Unknown]
